FAERS Safety Report 8791802 (Version 4)
Quarter: 2014Q3

REPORT INFORMATION
  Report Type: Spontaneous
  Country: US (occurrence: US)
  Receive Date: 20120918
  Receipt Date: 20140818
  Transmission Date: 20150326
  Serious: Yes (Hospitalization, Other)
  Sender: FDA-Public Use
  Company Number: US-009507513-2010SP029106

PATIENT
  Sex: Female
  Weight: 99.79 kg

DRUGS (2)
  1. NUVARING [Suspect]
     Active Substance: ETHINYL ESTRADIOL\ETONOGESTREL
     Indication: PELVIC PAIN
  2. NUVARING [Suspect]
     Active Substance: ETHINYL ESTRADIOL\ETONOGESTREL
     Indication: MENORRHAGIA
     Dosage: CONTINUOUSLY
     Route: 067
     Dates: start: 20060309, end: 200805

REACTIONS (15)
  - Peripheral swelling [Unknown]
  - Incorrect drug administration duration [Unknown]
  - Gallbladder disorder [Unknown]
  - Back pain [Unknown]
  - Headache [Unknown]
  - Migraine [Unknown]
  - Vitamin B12 deficiency [Unknown]
  - Vitamin D deficiency [Unknown]
  - Poor quality sleep [Unknown]
  - Cholecystectomy [Unknown]
  - Pulmonary embolism [Recovered/Resolved]
  - Weight increased [Unknown]
  - Off label use [Recovered/Resolved]
  - Peripheral venous disease [Unknown]
  - Adverse drug reaction [Unknown]

NARRATIVE: CASE EVENT DATE: 20060309
